FAERS Safety Report 17765798 (Version 1)
Quarter: 2020Q2

REPORT INFORMATION
  Report Type: Spontaneous
  Country: US (occurrence: US)
  Receive Date: 20200510
  Receipt Date: 20200510
  Transmission Date: 20200714
  Serious: No
  Sender: FDA-Public Use
  Company Number: None

PATIENT
  Age: 63 Year
  Sex: Female
  Weight: 77.4 kg

DRUGS (1)
  1. CIPROFLOXACIN HCL 500 MG [Suspect]
     Active Substance: CIPROFLOXACIN HYDROCHLORIDE
     Indication: URINARY TRACT INFECTION
     Dosage: ?          QUANTITY:1 TABLET(S);?
     Route: 048
     Dates: start: 20200311, end: 20200318

REACTIONS (5)
  - Pain in extremity [None]
  - Neuralgia [None]
  - Arthralgia [None]
  - Tendon disorder [None]
  - Musculoskeletal pain [None]

NARRATIVE: CASE EVENT DATE: 20200427
